FAERS Safety Report 24883817 (Version 2)
Quarter: 2025Q1

REPORT INFORMATION
  Report Type: Spontaneous
  Country: FR (occurrence: FR)
  Receive Date: 20250124
  Receipt Date: 20250207
  Transmission Date: 20250408
  Serious: Yes (Hospitalization, Other)
  Sender: FRESENIUS KABI
  Company Number: None

PATIENT
  Age: 55 Year
  Sex: Male

DRUGS (6)
  1. LIDOCAINE [Suspect]
     Active Substance: LIDOCAINE
     Indication: Varicose vein operation
     Route: 008
     Dates: start: 20240208, end: 20240208
  2. BUPIVACAINE HYDROCHLORIDE\SODIUM CHLORIDE\SODIUM HYDROXIDE [Suspect]
     Active Substance: BUPIVACAINE HYDROCHLORIDE\SODIUM CHLORIDE\SODIUM HYDROXIDE
     Indication: Varicose vein operation
     Route: 008
     Dates: start: 20240208, end: 20240208
  3. EPHEDRINE [Suspect]
     Active Substance: EPHEDRINE
     Indication: Varicose vein operation
     Route: 042
     Dates: start: 20240208, end: 20240208
  4. SUFENTANIL [Suspect]
     Active Substance: SUFENTANIL
     Indication: Varicose vein operation
     Route: 042
     Dates: start: 20240208, end: 20240208
  5. KETOPROFEN [Suspect]
     Active Substance: KETOPROFEN
     Indication: Analgesic therapy
     Route: 042
     Dates: start: 20240208, end: 20240208
  6. INNOHEP [Suspect]
     Active Substance: TINZAPARIN SODIUM
     Indication: Prophylaxis
     Route: 058
     Dates: start: 20240208, end: 20240208

REACTIONS (1)
  - Hepatocellular injury [Recovered/Resolved]

NARRATIVE: CASE EVENT DATE: 20240208
